FAERS Safety Report 4918832-X (Version None)
Quarter: 2006Q1

REPORT INFORMATION
  Report Type: 
  Country: None (occurrence: None)
  Receive Date: 20060222
  Receipt Date: 20050616
  Transmission Date: 20060701
  Serious: Yes (Hospitalization, Other)
  Sender: FDA-Public Use
  Company Number: US-MERCK-0506USA02708

PATIENT
  Age: 66 Year
  Sex: Male

DRUGS (1)
  1. VIOXX [Suspect]
     Route: 048
     Dates: start: 20010101

REACTIONS (4)
  - CEREBROVASCULAR ACCIDENT [None]
  - CORONARY ARTERY STENOSIS [None]
  - HYPERCHOLESTEROLAEMIA [None]
  - HYPERTENSION [None]
